FAERS Safety Report 13000410 (Version 1)
Quarter: 2016Q4

REPORT INFORMATION
  Report Type: Spontaneous
  Country: GB (occurrence: GB)
  Receive Date: 20161206
  Receipt Date: 20161206
  Transmission Date: 20170207
  Serious: Yes (Other)
  Sender: FDA-Public Use
  Company Number: PHHY2016GB161615

PATIENT
  Age: 55 Year
  Sex: Male
  Weight: 75 kg

DRUGS (6)
  1. BENDROFLUMETHIAZIDE [Concomitant]
     Active Substance: BENDROFLUMETHIAZIDE
     Indication: PRODUCT USED FOR UNKNOWN INDICATION
     Route: 065
  2. LISINOPRIL. [Concomitant]
     Active Substance: LISINOPRIL
     Indication: PRODUCT USED FOR UNKNOWN INDICATION
     Route: 065
  3. ADALAT [Concomitant]
     Active Substance: NIFEDIPINE
     Indication: PRODUCT USED FOR UNKNOWN INDICATION
     Route: 065
  4. MOMETASONE FUROATE. [Suspect]
     Active Substance: MOMETASONE FUROATE
     Indication: NASAL POLYPS
     Dosage: 100 UG, QD, PER NOSTRIL, IN THE MORNING
     Route: 045
     Dates: end: 20161028
  5. NASOBEC AQUEOUS [Suspect]
     Active Substance: BECLOMETHASONE DIPROPIONATE
     Indication: NASAL POLYPS
     Dosage: 100 UG, QD, PER NOSTRIL AT NIGHT
     Route: 045
     Dates: start: 20160928, end: 20161111
  6. LAMOTRIGINE. [Concomitant]
     Active Substance: LAMOTRIGINE
     Indication: PRODUCT USED FOR UNKNOWN INDICATION
     Route: 065

REACTIONS (1)
  - Mania [Recovering/Resolving]

NARRATIVE: CASE EVENT DATE: 20160929
